FAERS Safety Report 20580173 (Version 4)
Quarter: 2022Q3

REPORT INFORMATION
  Report Type: Report from Study
  Country: US (occurrence: US)
  Receive Date: 20220310
  Receipt Date: 20220910
  Transmission Date: 20221027
  Serious: No
  Sender: FDA-Public Use
  Company Number: US-NOVARTISTESTPH-NVSC2022US056583

PATIENT
  Age: 65 Year
  Sex: Female

DRUGS (1)
  1. ENTRESTO [Suspect]
     Active Substance: SACUBITRIL\VALSARTAN
     Indication: Cardiac failure
     Dosage: 50 MG, BID (24/26 MG)
     Route: 048
     Dates: start: 20220114

REACTIONS (11)
  - Weight decreased [Unknown]
  - Glucose tolerance impaired [Unknown]
  - Bite [Unknown]
  - Sluggishness [Unknown]
  - Urticaria [Recovered/Resolved]
  - Hypersensitivity [Unknown]
  - Poor peripheral circulation [Unknown]
  - Restless legs syndrome [Unknown]
  - Limb discomfort [Unknown]
  - Sensory disturbance [Unknown]
  - Hypotension [Unknown]

NARRATIVE: CASE EVENT DATE: 20220501
